FAERS Safety Report 11354649 (Version 1)
Quarter: 2015Q3

REPORT INFORMATION
  Report Type: Spontaneous
  Country: US (occurrence: US)
  Receive Date: 20150807
  Receipt Date: 20150807
  Transmission Date: 20151125
  Serious: No
  Sender: FDA-Public Use
  Company Number: US-JNJFOC-20150415519

PATIENT
  Age: 54 Year
  Sex: Female
  Weight: 123.83 kg

DRUGS (1)
  1. CONCERTA [Suspect]
     Active Substance: METHYLPHENIDATE HYDROCHLORIDE
     Indication: NARCOLEPSY
     Route: 048

REACTIONS (6)
  - Impaired work ability [Unknown]
  - Aphasia [Recovered/Resolved]
  - Therapeutic product ineffective for unapproved indication [Unknown]
  - Hallucination [Recovered/Resolved]
  - Product use issue [Unknown]
  - Incoherent [Recovered/Resolved]

NARRATIVE: CASE EVENT DATE: 20150416
